FAERS Safety Report 12259694 (Version 1)
Quarter: 2016Q2

REPORT INFORMATION
  Report Type: Spontaneous
  Country: US (occurrence: US)
  Receive Date: 20160412
  Receipt Date: 20160412
  Transmission Date: 20160815
  Serious: No
  Sender: FDA-Public Use
  Company Number: US-SA-2015SA122375

PATIENT
  Age: 4 Year
  Sex: Male
  Weight: 24.49 kg

DRUGS (2)
  1. ALLEGRA [Suspect]
     Active Substance: FEXOFENADINE HYDROCHLORIDE
     Indication: MULTIPLE ALLERGIES
     Dosage: STARTED SINCE THE PATIENT WAS 01-YEAR-OLD
     Route: 048
  2. ALLEGRA [Suspect]
     Active Substance: FEXOFENADINE HYDROCHLORIDE
     Indication: MULTIPLE ALLERGIES
     Route: 048
     Dates: start: 20150812, end: 20150812

REACTIONS (2)
  - Extra dose administered [Unknown]
  - Rhinalgia [Unknown]

NARRATIVE: CASE EVENT DATE: 20150812
